FAERS Safety Report 12600120 (Version 2)
Quarter: 2016Q4

REPORT INFORMATION
  Report Type: Spontaneous
  Country: US (occurrence: US)
  Receive Date: 20160727
  Receipt Date: 20161104
  Transmission Date: 20170207
  Serious: Yes (Other)
  Sender: FDA-Public Use
  Company Number: US-BAYER-2016-141866

PATIENT
  Age: 47 Year
  Sex: Female
  Weight: 88.45 kg

DRUGS (1)
  1. AVELOX [Suspect]
     Active Substance: MOXIFLOXACIN HYDROCHLORIDE
     Dosage: 400 MG, UNK
     Dates: start: 20060225, end: 20060303

REACTIONS (7)
  - Physical disability [None]
  - Pain [None]
  - Anxiety [None]
  - Neuropathy peripheral [None]
  - Neuropathy peripheral [None]
  - Peripheral nerve injury [None]
  - Anhedonia [None]

NARRATIVE: CASE EVENT DATE: 200602
